FAERS Safety Report 5849390-3 (Version None)
Quarter: 2008Q3

REPORT INFORMATION
  Report Type: 
  Country: None (occurrence: None)
  Receive Date: 20080815
  Receipt Date: 20080805
  Transmission Date: 20090109
  Serious: Yes (Hospitalization, Other)
  Sender: FDA-Public Use
  Company Number: CHNY2005GB00462

PATIENT
  Age: 15 Month
  Sex: Female

DRUGS (3)
  1. IBUPROFEN [Suspect]
     Indication: PYREXIA
     Dosage: 5 MG KG, ORAL
     Route: 048
  2. ACETAMINOPHEN [Suspect]
     Indication: PYREXIA
     Dosage: 15 MG KG, ORAL
     Route: 048
  3. CEFUROXIME [Concomitant]

REACTIONS (3)
  - DRUG INTERACTION [None]
  - HYPOTHERMIA [None]
  - SEPSIS [None]
